FAERS Safety Report 9410812 (Version 5)
Quarter: 2013Q4

REPORT INFORMATION
  Report Type: Report from Study
  Country: BR (occurrence: BR)
  Receive Date: 20130719
  Receipt Date: 20131004
  Transmission Date: 20140711
  Serious: Yes (Hospitalization)
  Sender: FDA-Public Use
  Company Number: BR-PFIZER INC-2013210349

PATIENT
  Age: 57 Year
  Sex: Female
  Weight: 64.4 kg

DRUGS (11)
  1. PLATISTINE [Suspect]
     Indication: NON-SMALL CELL LUNG CANCER
     Dosage: 120.3 MG, CYCLIC (DAY 1 OF 21 DAY CYCLE)
     Route: 042
     Dates: start: 20130607, end: 20130625
  2. PLATISTINE [Suspect]
     Dosage: UNK
     Route: 042
     Dates: start: 20130730
  3. PEMETREXED [Suspect]
     Indication: NON-SMALL CELL LUNG CANCER
     Dosage: 802 MG, CYCLIC (DAY 1 OF 21 DAY CYCLE)
     Route: 042
     Dates: start: 20130607, end: 20130625
  4. PEMETREXED [Suspect]
     Dosage: UNK
     Route: 042
     Dates: start: 20130730
  5. FOLIC ACID [Concomitant]
     Indication: PROPHYLAXIS
     Dosage: 400 UG, DAILY
     Route: 048
     Dates: start: 20130528
  6. ATENOLOL [Concomitant]
     Indication: HYPERTENSION
     Dosage: 25 MG, DAILY
     Route: 048
     Dates: start: 1995
  7. DRAMIN B-6 [Concomitant]
     Indication: NAUSEA
     Dosage: 50 MG, DAILY
     Route: 048
     Dates: start: 20130425, end: 20130715
  8. DRAMIN B-6 [Concomitant]
     Indication: VOMITING
  9. BROMOPRIDE [Concomitant]
     Indication: NAUSEA
     Dosage: 10 MG, TWICE
     Route: 048
     Dates: start: 20130528, end: 20130715
  10. BROMOPRIDE [Concomitant]
     Indication: VOMITING
  11. METHADONE [Concomitant]
     Indication: BONE PAIN
     Dosage: 5 MG, DAILY
     Route: 048
     Dates: start: 20130609, end: 20130715

REACTIONS (1)
  - Pulmonary embolism [Recovered/Resolved]
